FAERS Safety Report 6019711-X (Version None)
Quarter: 2008Q4

REPORT INFORMATION
  Report Type: 
  Country: None (occurrence: None)
  Receive Date: 20081224
  Receipt Date: 20081217
  Transmission Date: 20090506
  Serious: Yes (Other)
  Sender: FDA-Public Use
  Company Number: KP-WATSON-2008-07437

PATIENT
  Age: 47 Year
  Sex: Male

DRUGS (1)
  1. LIDOCAINE 1% W/ EPINEPHRINE 1:200,000 [Suspect]
     Indication: HAEMORRHAGE
     Dosage: 0.2 - 0.3 ML, SINGLE
     Route: 045

REACTIONS (1)
  - STRESS CARDIOMYOPATHY [None]
